FAERS Safety Report 15133054 (Version 1)
Quarter: 2018Q3

REPORT INFORMATION
  Report Type: Spontaneous
  Country: US (occurrence: US)
  Receive Date: 20180712
  Receipt Date: 20180712
  Transmission Date: 20181010
  Serious: No
  Sender: FDA-Public Use
  Company Number: US-SUN PHARMACEUTICAL INDUSTRIES LTD-2017US-156212

PATIENT
  Sex: Female

DRUGS (1)
  1. ABSORICA [Suspect]
     Active Substance: ISOTRETINOIN
     Indication: ACNE
     Dosage: 1 DF, QD
     Route: 065
     Dates: start: 201711

REACTIONS (2)
  - Inappropriate schedule of drug administration [Unknown]
  - Back pain [Unknown]

NARRATIVE: CASE EVENT DATE: 201711
